FAERS Safety Report 5067050-6 (Version None)
Quarter: 2006Q3

REPORT INFORMATION
  Report Type: 
  Country: None (occurrence: None)
  Receive Date: 20060727
  Receipt Date: 20060714
  Transmission Date: 20061208
  Serious: Yes (Hospitalization, Other)
  Sender: FDA-Public Use
  Company Number: 2006089079

PATIENT
  Sex: Male

DRUGS (1)
  1. BEXTRA [Suspect]
     Dates: start: 20020801, end: 20041201

REACTIONS (1)
  - CORONARY ARTERY OCCLUSION [None]
